FAERS Safety Report 8936764 (Version 2)
Quarter: 2013Q1

REPORT INFORMATION
  Report Type: Report from Study
  Country: ES (occurrence: ES)
  Receive Date: 20121130
  Receipt Date: 20130211
  Transmission Date: 20140127
  Serious: Yes (Hospitalization)
  Sender: FDA-Public Use
  Company Number: ES-ABBOTT-12P-144-1011620-00

PATIENT
  Age: 22 Year
  Sex: Male
  Weight: 80 kg

DRUGS (6)
  1. HUMIRA [Suspect]
     Indication: CROHN^S DISEASE
     Dosage: ONCE
     Route: 058
     Dates: start: 20090214, end: 20090214
  2. HUMIRA [Suspect]
     Dosage: WEEK 2
  3. HUMIRA [Suspect]
  4. CALCIUM [Concomitant]
     Indication: OSTEOPOROSIS PROPHYLAXIS
     Dates: start: 20110119, end: 20110319
  5. OMEPRAZOLE [Concomitant]
     Indication: GASTRIC DISORDER
     Dates: start: 20110119, end: 20110319
  6. OMEPRAZOLE [Concomitant]
     Indication: PROPHYLAXIS

REACTIONS (1)
  - Crohn^s disease [Recovered/Resolved]
